FAERS Safety Report 8763790 (Version 1)
Quarter: 2012Q4

REPORT INFORMATION
  Report Type: 
  Country: CO (occurrence: CO)
  Receive Date: 20120831
  Receipt Date: 20120831
  Transmission Date: 20130627
  Serious: Yes (Other)
  Sender: FDA-Public Use
  Company Number: CO-PFIZER INC-2012211337

PATIENT
  Age: 57 Year
  Sex: Female

DRUGS (4)
  1. LYRICA [Suspect]
     Indication: SPINAL PAIN
     Dosage: 150 mg, 1x/day
     Route: 048
     Dates: start: 201202
  2. LYRICA [Suspect]
     Indication: PAIN IN EXTREMITY
  3. LYRICA [Suspect]
     Indication: OEDEMA PERIPHERAL
  4. SYNTHROID [Concomitant]
     Indication: HYPOTHYROIDISM
     Dosage: 112 mg, 1x/day
     Route: 048
     Dates: start: 2002

REACTIONS (1)
  - Intervertebral disc protrusion [Not Recovered/Not Resolved]
